FAERS Safety Report 11562399 (Version 1)
Quarter: 2015Q3

REPORT INFORMATION
  Report Type: Spontaneous
  Country: US (occurrence: US)
  Receive Date: 20150916
  Receipt Date: 20150916
  Transmission Date: 20151125
  Serious: No
  Sender: FDA-Public Use
  Company Number: US-ELI_LILLY_AND_COMPANY-US200812001706

PATIENT
  Sex: Female

DRUGS (3)
  1. MIACALCIN [Concomitant]
     Active Substance: CALCITONIN SALMON
  2. ACTONEL [Concomitant]
     Active Substance: RISEDRONATE SODIUM
  3. FORTEO [Suspect]
     Active Substance: TERIPARATIDE
     Indication: OSTEOPOROSIS
     Dates: start: 2006, end: 200806

REACTIONS (2)
  - Bone disorder [Unknown]
  - Pain [Unknown]

NARRATIVE: CASE EVENT DATE: 2006
